FAERS Safety Report 17219291 (Version 1)
Quarter: 2019Q4

REPORT INFORMATION
  Report Type: Report from Study
  Country: EG (occurrence: EG)
  Receive Date: 20191231
  Receipt Date: 20191231
  Transmission Date: 20200122
  Serious: Yes (Other)
  Sender: FDA-Public Use
  Company Number: NVSC2019EG080099

PATIENT
  Age: 31 Year
  Sex: Male

DRUGS (1)
  1. GILENYA [Suspect]
     Active Substance: FINGOLIMOD HYDROCHLORIDE
     Indication: MULTIPLE SCLEROSIS
     Dosage: 0.5 MG, QD
     Route: 065
     Dates: start: 20191214

REACTIONS (4)
  - Diplopia [Recovering/Resolving]
  - Lagophthalmos [Recovering/Resolving]
  - Facial paralysis [Recovering/Resolving]
  - Strabismus [Recovering/Resolving]

NARRATIVE: CASE EVENT DATE: 20191215
